FAERS Safety Report 6174060-4 (Version None)
Quarter: 2009Q2

REPORT INFORMATION
  Report Type: 
  Country: None (occurrence: None)
  Receive Date: 20090430
  Receipt Date: 20080306
  Transmission Date: 20091009
  Serious: No
  Sender: FDA-Public Use
  Company Number: US-ASTRAZENECA-2008UW04727

PATIENT
  Age: 73 Year
  Sex: Female

DRUGS (5)
  1. NEXIUM [Suspect]
     Indication: REFLUX OESOPHAGITIS
     Route: 048
     Dates: start: 20060101
  2. NEXIUM [Suspect]
     Indication: OESOPHAGEAL DISORDER
     Route: 048
     Dates: start: 20060101
  3. CALCIUM [Concomitant]
  4. MULTI-VITAMIN [Concomitant]
  5. VITAMIN D [Concomitant]

REACTIONS (1)
  - BONE DENSITY DECREASED [None]
